FAERS Safety Report 20785199 (Version 1)
Quarter: 2022Q2

REPORT INFORMATION
  Report Type: Spontaneous
  Country: US (occurrence: None)
  Receive Date: 20220504
  Receipt Date: 20220504
  Transmission Date: 20220721
  Serious: No
  Sender: FDA-Public Use
  Company Number: None

PATIENT
  Age: 81 Year
  Sex: Male

DRUGS (1)
  1. LUPRON DEPOT [Suspect]
     Active Substance: LEUPROLIDE ACETATE
     Indication: Prostate cancer
     Dosage: 22.5MG EVERY 3 MONTHS SUBCUTANEOUS?
     Route: 058

REACTIONS (3)
  - Therapy interrupted [None]
  - Fall [None]
  - Spinal fracture [None]

NARRATIVE: CASE EVENT DATE: 20220315
